FAERS Safety Report 17256155 (Version 1)
Quarter: 2020Q1

REPORT INFORMATION
  Report Type: Spontaneous
  Country: FR (occurrence: FR)
  Receive Date: 20200110
  Receipt Date: 20200110
  Transmission Date: 20200409
  Serious: Yes (Hospitalization)
  Sender: FDA-Public Use
  Company Number: FR-ROCHE-2514161

PATIENT
  Age: 58 Year
  Sex: Female
  Weight: 58 kg

DRUGS (3)
  1. URBANYL [Concomitant]
     Active Substance: CLOBAZAM
     Route: 048
  2. XELODA [Suspect]
     Active Substance: CAPECITABINE
     Indication: BREAST CANCER
     Route: 048
     Dates: start: 20190909, end: 20190920
  3. LAMICTAL [Concomitant]
     Active Substance: LAMOTRIGINE
     Route: 048

REACTIONS (2)
  - Diarrhoea [Recovered/Resolved]
  - Bicytopenia [Recovering/Resolving]

NARRATIVE: CASE EVENT DATE: 20190920
